FAERS Safety Report 25307182 (Version 1)
Quarter: 2025Q2

REPORT INFORMATION
  Report Type: Spontaneous
  Country: US (occurrence: None)
  Receive Date: 20250512
  Receipt Date: 20250512
  Transmission Date: 20250717
  Serious: Yes (Life-Threatening)
  Sender: FDA-CTU
  Company Number: None

PATIENT
  Age: 86 Year
  Sex: Female
  Weight: 59.87 kg

DRUGS (9)
  1. KETOROLAC [Suspect]
     Active Substance: KETOROLAC TROMETHAMINE
     Indication: Arthralgia
  2. LEVOTHYROXINE [Concomitant]
     Active Substance: LEVOTHYROXINE
  3. OMEPRAZOLE [Concomitant]
     Active Substance: OMEPRAZOLE
  4. LIDOCAINE [Concomitant]
     Active Substance: LIDOCAINE
  5. Chlorpromazine  Malcate [Concomitant]
  6. Tylenol 8 hr not when using Ketorolac, after D/C [Concomitant]
  7. B6 Niacinamide [Concomitant]
  8. Calcium daily [Concomitant]
  9. AMINO ACIDS, SOURCE UNSPECIFIED [Concomitant]
     Active Substance: AMINO ACIDS, SOURCE UNSPECIFIED

REACTIONS (5)
  - Contusion [None]
  - Melaena [None]
  - Dizziness [None]
  - Heart rate increased [None]
  - Heart rate irregular [None]

NARRATIVE: CASE EVENT DATE: 20240812
